FAERS Safety Report 6060356-3 (Version None)
Quarter: 2009Q1

REPORT INFORMATION
  Report Type: 
  Country: None (occurrence: None)
  Receive Date: 20090129
  Receipt Date: 20090129
  Transmission Date: 20090719
  Serious: Yes (Other)
  Sender: FDA-Public Use
  Company Number: None

PATIENT
  Age: 64 Year
  Sex: Male
  Weight: 76.6 kg

DRUGS (11)
  1. VANCOMYCIN HCL [Suspect]
     Indication: BACTERAEMIA
     Dosage: 1G
     Dates: start: 20081016, end: 20081016
  2. LISINOPRIL [Concomitant]
  3. LOVENOX [Concomitant]
  4. FLORINEF [Concomitant]
  5. VITAMIN E [Concomitant]
  6. INSULIN [Concomitant]
  7. ASCORBIC ACID [Concomitant]
  8. MULTI-VITAMIN [Concomitant]
  9. ASPIRIN [Concomitant]
  10. PRILOSEC [Concomitant]
  11. LEVAQUIN [Suspect]

REACTIONS (1)
  - RASH [None]
